FAERS Safety Report 4295313-0 (Version None)
Quarter: 2004Q1

REPORT INFORMATION
  Report Type: 
  Country: None (occurrence: None)
  Receive Date: 20040216
  Receipt Date: 20030529
  Transmission Date: 20041129
  Serious: Yes (Other)
  Sender: FDA-Public Use
  Company Number: US-GLAXOSMITHKLINE-A0410582A

PATIENT
  Sex: Female

DRUGS (1)
  1. LAMICTAL [Suspect]
     Dosage: 250MG PER DAY
     Route: 048

REACTIONS (5)
  - ORAL DISCOMFORT [None]
  - PARAESTHESIA [None]
  - RASH [None]
  - STEVENS-JOHNSON SYNDROME [None]
  - VULVOVAGINAL DISCOMFORT [None]
